FAERS Safety Report 8486156-2 (Version None)
Quarter: 2012Q3

REPORT INFORMATION
  Report Type: 
  Country: None (occurrence: None)
  Receive Date: 20120703
  Receipt Date: 20120628
  Transmission Date: 20120928
  Serious: Yes (Hospitalization)
  Sender: FDA-Public Use
  Company Number: DE-TEVA-346086USA

PATIENT
  Sex: Male
  Weight: 77 kg

DRUGS (2)
  1. TREANDA [Suspect]
     Indication: MANTLE CELL LYMPHOMA
     Dosage: UID/QD
     Route: 042
     Dates: start: 20120425, end: 20120425
  2. TREANDA [Suspect]
     Dosage: UID/QD
     Route: 042
     Dates: start: 20120523, end: 20120523

REACTIONS (3)
  - GENERAL PHYSICAL HEALTH DETERIORATION [None]
  - CHILLS [None]
  - PYREXIA [None]
